FAERS Safety Report 13857423 (Version 1)
Quarter: 2017Q3

REPORT INFORMATION
  Report Type: Spontaneous
  Country: US (occurrence: US)
  Receive Date: 20170810
  Receipt Date: 20170810
  Transmission Date: 20171127
  Serious: Yes (Other)
  Sender: FDA-Public Use
  Company Number: US-CELGENEUS-USA-20170801059

PATIENT
  Age: 54 Year
  Sex: Female

DRUGS (1)
  1. REVLIMID [Suspect]
     Active Substance: LENALIDOMIDE
     Indication: PLASMA CELL MYELOMA
     Dosage: 15 MILLIGRAM
     Route: 048
     Dates: start: 20170608

REACTIONS (4)
  - Blood calcium decreased [Unknown]
  - Hypoaesthesia [Unknown]
  - Thrombosis [Unknown]
  - Nausea [Unknown]

NARRATIVE: CASE EVENT DATE: 20170801
